FAERS Safety Report 17475059 (Version 1)
Quarter: 2020Q1

REPORT INFORMATION
  Report Type: Report from Study
  Country: FR (occurrence: FR)
  Receive Date: 20200228
  Receipt Date: 20200228
  Transmission Date: 20200409
  Serious: Yes (Hospitalization, Other)
  Sender: FDA-Public Use
  Company Number: FR-JNJFOC-20190813367

PATIENT
  Sex: Male
  Weight: 47 kg

DRUGS (13)
  1. FLUCONAZOLE. [Concomitant]
     Active Substance: FLUCONAZOLE
  2. BACLOFENE [Concomitant]
     Active Substance: BACLOFEN
  3. STELARA [Suspect]
     Active Substance: USTEKINUMAB
     Indication: PSORIASIS
     Route: 058
     Dates: start: 20170509, end: 20170606
  4. DIPROSONE                          /00582101/ [Concomitant]
     Active Substance: BETAMETHASONE DIPROPIONATE\BETAMETHASONE SODIUM PHOSPHATE
  5. ECONAZOLE. [Concomitant]
     Active Substance: ECONAZOLE NITRATE
  6. CRESTOR [Concomitant]
     Active Substance: ROSUVASTATIN CALCIUM
  7. TOUJEO [Concomitant]
     Active Substance: INSULIN GLARGINE
  8. VASELINE                           /00473501/ [Concomitant]
     Active Substance: PARAFFIN
  9. CLOBEX                             /00012002/ [Concomitant]
     Active Substance: CLOXACILLIN SODIUM
  10. LANTUS [Concomitant]
     Active Substance: INSULIN GLARGINE
  11. KARDEGIC [Concomitant]
     Active Substance: ASPIRIN DL-LYSINE
  12. ACTRAPID [Concomitant]
     Active Substance: INSULIN HUMAN
  13. STELARA [Suspect]
     Active Substance: USTEKINUMAB
     Route: 058
     Dates: start: 20170606, end: 20190805

REACTIONS (3)
  - Carotid artery thrombosis [Recovered/Resolved]
  - Cardiovascular disorder [Unknown]
  - Transient ischaemic attack [Recovered/Resolved]

NARRATIVE: CASE EVENT DATE: 20190201
